FAERS Safety Report 14753943 (Version 1)
Quarter: 2018Q2

REPORT INFORMATION
  Report Type: Spontaneous
  Country: FR (occurrence: FR)
  Receive Date: 20180412
  Receipt Date: 20180412
  Transmission Date: 20180711
  Serious: Yes (Hospitalization, Other)
  Sender: FDA-Public Use
  Company Number: FR-BAUSCH-BL-2018-009121

PATIENT
  Sex: Female
  Weight: 57 kg

DRUGS (11)
  1. LIVIAL [Suspect]
     Active Substance: TIBOLONE
     Indication: HORMONE REPLACEMENT THERAPY
     Route: 048
     Dates: start: 20060101, end: 20060101
  2. LIVIAL [Suspect]
     Active Substance: TIBOLONE
     Route: 048
     Dates: start: 20060101, end: 20151201
  3. LIVIAL [Suspect]
     Active Substance: TIBOLONE
     Route: 048
     Dates: start: 20171001, end: 20171101
  4. IMOVANE [Concomitant]
     Active Substance: ZOPICLONE
     Indication: PRODUCT USED FOR UNKNOWN INDICATION
     Dates: start: 20000101
  5. LIVIAL [Suspect]
     Active Substance: TIBOLONE
     Route: 048
     Dates: start: 20171102, end: 20171112
  6. LIVIAL [Suspect]
     Active Substance: TIBOLONE
     Route: 048
     Dates: start: 20151201, end: 20160101
  7. ALDARA [Suspect]
     Active Substance: IMIQUIMOD
     Indication: ANOGENITAL WARTS
     Dosage: DURING ONE MONTH
     Route: 061
     Dates: start: 20160501
  8. INEXIUM [Concomitant]
     Active Substance: ESOMEPRAZOLE
     Indication: PRODUCT USED FOR UNKNOWN INDICATION
  9. LIVIAL [Suspect]
     Active Substance: TIBOLONE
     Route: 048
  10. LIVIAL [Suspect]
     Active Substance: TIBOLONE
     Route: 048
     Dates: start: 20171113
  11. LIVIAL [Suspect]
     Active Substance: TIBOLONE
     Route: 048
     Dates: start: 20170209, end: 20171003

REACTIONS (39)
  - Lip dry [Unknown]
  - Fall [Unknown]
  - Blood pressure decreased [Unknown]
  - Decreased appetite [Not Recovered/Not Resolved]
  - Breast pain [Unknown]
  - Weight increased [Not Recovered/Not Resolved]
  - Insomnia [Unknown]
  - Burning sensation [Unknown]
  - Urinary tract infection [Unknown]
  - Pyrexia [Unknown]
  - Libido decreased [Unknown]
  - Neck mass [Unknown]
  - Inappropriate schedule of drug administration [Unknown]
  - Amnesia [Unknown]
  - Bone pain [Unknown]
  - Paraesthesia [Unknown]
  - C-reactive protein increased [Unknown]
  - Breast cancer [Recovered/Resolved]
  - Ulcer [Unknown]
  - Off label use [Unknown]
  - Incorrect dose administered [Unknown]
  - Hysterectomy [Unknown]
  - Breast calcifications [Unknown]
  - Breast discomfort [Unknown]
  - Headache [Unknown]
  - Nausea [Unknown]
  - Purpura [Unknown]
  - Vulvovaginal pruritus [Unknown]
  - Eye pain [Unknown]
  - Abdominal pain [Unknown]
  - Wrong technique in product usage process [Unknown]
  - Papilloma viral infection [Unknown]
  - Muscle spasms [Unknown]
  - Anal haemorrhage [Unknown]
  - Vulvovaginal dryness [Unknown]
  - Cervicitis human papilloma virus [Unknown]
  - Breast swelling [Recovered/Resolved]
  - Dizziness [Unknown]
  - Fatigue [Unknown]

NARRATIVE: CASE EVENT DATE: 20060101
